FAERS Safety Report 4462427-1 (Version None)
Quarter: 2004Q3

REPORT INFORMATION
  Report Type: 
  Country: None (occurrence: None)
  Receive Date: 20040924
  Receipt Date: 20040810
  Transmission Date: 20050211
  Serious: Yes (Disabling)
  Sender: FDA-Public Use
  Company Number: A01200403920

PATIENT
  Sex: Male

DRUGS (4)
  1. ELOXATIN [Suspect]
     Indication: COLON CANCER METASTATIC
  2. KYTRIL [Concomitant]
  3. DOMPERIDONE [Concomitant]
  4. DEXAMETHASONE [Concomitant]

REACTIONS (2)
  - THERAPY NON-RESPONDER [None]
  - TRIGEMINAL NEURALGIA [None]
